FAERS Safety Report 18494538 (Version 2)
Quarter: 2020Q4

REPORT INFORMATION
  Report Type: Spontaneous
  Country: IT (occurrence: IT)
  Receive Date: 20201112
  Receipt Date: 20201117
  Transmission Date: 20210114
  Serious: Yes (Hospitalization)
  Sender: FDA-Public Use
  Company Number: IT-TEVA-2020-IT-1847548

PATIENT
  Age: 18 Year
  Sex: Male
  Weight: 91 kg

DRUGS (1)
  1. ETOPOSIDE TEVA [Suspect]
     Active Substance: ETOPOSIDE
     Indication: PINEALOBLASTOMA
     Dosage: UNIT DOSE : 4.8 GRAM
     Route: 042
     Dates: start: 20201023, end: 20201023

REACTIONS (6)
  - Chills [Recovering/Resolving]
  - Rash [Recovering/Resolving]
  - Hyperpyrexia [Recovering/Resolving]
  - Hypertension [Recovering/Resolving]
  - Sopor [Recovering/Resolving]
  - Tachycardia [Recovering/Resolving]

NARRATIVE: CASE EVENT DATE: 20201023
